FAERS Safety Report 15885411 (Version 2)
Quarter: 2019Q1

REPORT INFORMATION
  Report Type: Spontaneous
  Country: US (occurrence: US)
  Receive Date: 20190129
  Receipt Date: 20190228
  Transmission Date: 20190417
  Serious: No
  Sender: FDA-Public Use
  Company Number: US-ASTRAZENECA-2019SE03259

PATIENT
  Sex: Male

DRUGS (2)
  1. SYMBICORT [Suspect]
     Active Substance: BUDESONIDE\FORMOTEROL FUMARATE DIHYDRATE
     Indication: ASTHMA
     Route: 055
  2. PULMICORT FLEXHALER [Suspect]
     Active Substance: BUDESONIDE
     Indication: ASTHMA
     Dosage: 90 MCG TWO PUFFS BEFORE BED AT NIGHT
     Route: 055

REACTIONS (6)
  - Incorrect dose administered [Unknown]
  - Cough [Unknown]
  - Product dose omission [Unknown]
  - Wheezing [Unknown]
  - Device malfunction [Unknown]
  - Off label use [Unknown]
